FAERS Safety Report 14676264 (Version 1)
Quarter: 2018Q1

REPORT INFORMATION
  Report Type: Spontaneous
  Country: FR (occurrence: FR)
  Receive Date: 20180323
  Receipt Date: 20180323
  Transmission Date: 20180509
  Serious: Yes (Other)
  Sender: FDA-Public Use
  Company Number: FR-TEVA-2018-FR-870285

PATIENT
  Age: 29 Year
  Sex: Male
  Weight: 88 kg

DRUGS (3)
  1. ZELITREX [Concomitant]
     Active Substance: VALACYCLOVIR HYDROCHLORIDE
  2. INTELENCE [Concomitant]
     Active Substance: ETRAVIRINE
  3. EMTRICITABINE/TENOFOVIR DISOPROXIL TEVA [Suspect]
     Active Substance: EMTRICITABINE\TENOFOVIR DISOPROXIL
     Indication: HIV TEST POSITIVE
     Dosage: 1 PILL DAILY
     Route: 048

REACTIONS (1)
  - Weight increased [Not Recovered/Not Resolved]
